FAERS Safety Report 12179865 (Version 4)
Quarter: 2016Q3

REPORT INFORMATION
  Report Type: Report from Study
  Country: BE (occurrence: BE)
  Receive Date: 20160315
  Receipt Date: 20160831
  Transmission Date: 20161109
  Serious: Yes (Hospitalization, Other)
  Sender: FDA-Public Use
  Company Number: PHHY2015BE146705

PATIENT
  Age: 34 Year
  Sex: Female
  Weight: 54 kg

DRUGS (3)
  1. GILENYA [Suspect]
     Active Substance: FINGOLIMOD HYDROCHLORIDE
     Indication: MULTIPLE SCLEROSIS
     Dosage: 0.5 MG, QD
     Route: 048
     Dates: start: 20120416, end: 20151015
  2. LEMTRADA [Suspect]
     Active Substance: ALEMTUZUMAB
     Indication: MULTIPLE SCLEROSIS
     Dosage: 12 MG, QD
     Route: 042
     Dates: start: 20151214, end: 20151218
  3. ASAFLOW [Concomitant]
     Active Substance: ASPIRIN
     Indication: PRODUCT USED FOR UNKNOWN INDICATION
     Dosage: 80 MG, QD
     Route: 048

REACTIONS (18)
  - Dysuria [Unknown]
  - Pyrexia [Recovering/Resolving]
  - Chromaturia [Recovering/Resolving]
  - Pollakiuria [Unknown]
  - Urinary retention [Unknown]
  - Vitamin D decreased [Unknown]
  - Escherichia urinary tract infection [Recovering/Resolving]
  - Gait disturbance [Unknown]
  - Chills [Recovering/Resolving]
  - Bladder discomfort [Unknown]
  - Urethral stenosis [Recovering/Resolving]
  - Micturition disorder [Unknown]
  - Hypertonia [Unknown]
  - Limb discomfort [Unknown]
  - Muscular weakness [Unknown]
  - Cystitis haemorrhagic [Unknown]
  - Gait spastic [Unknown]
  - Extensor plantar response [Unknown]

NARRATIVE: CASE EVENT DATE: 20131008
